FAERS Safety Report 8734070 (Version 2)
Quarter: 2012Q4

REPORT INFORMATION
  Report Type: Report from Study
  Country: GB (occurrence: GB)
  Receive Date: 20120821
  Receipt Date: 20120910
  Transmission Date: 20130627
  Serious: No
  Sender: FDA-Public Use
  Company Number: GB-ACTELION-A-CH2012-68112

PATIENT
  Age: 29 Year
  Sex: Male
  Weight: 55.2 kg

DRUGS (4)
  1. ZAVESCA [Suspect]
     Indication: NIEMANN-PICK DISEASE
     Dosage: 200 mg, tid
     Route: 048
     Dates: start: 20111010
  2. ZAVESCA [Suspect]
     Dosage: 100 mg, tid
     Route: 048
  3. ZAVESCA [Suspect]
     Dosage: 200 mg, bid
     Route: 048
  4. TRIMETHOPRIM [Concomitant]
     Dosage: UNK , UNK

REACTIONS (2)
  - Weight decreased [Not Recovered/Not Resolved]
  - Diarrhoea [Recovered/Resolved]
